FAERS Safety Report 12726378 (Version 4)
Quarter: 2016Q3

REPORT INFORMATION
  Report Type: Spontaneous
  Country: US (occurrence: US)
  Receive Date: 20160908
  Receipt Date: 20160923
  Transmission Date: 20161109
  Serious: Yes (Other)
  Sender: FDA-Public Use
  Company Number: US-CELGENEUS-USA-2016091224

PATIENT
  Age: 66 Year
  Sex: Female
  Weight: 72.64 kg

DRUGS (8)
  1. VASELINE PURE [Concomitant]
     Active Substance: PETROLATUM
     Indication: HAEMORRHOIDS
     Route: 065
     Dates: start: 201608
  2. VITAMIN A AND D [Concomitant]
     Active Substance: LANOLIN\PETROLATUM
     Indication: HAEMORRHOIDS
     Route: 054
     Dates: start: 201608
  3. BABY WIPES [Concomitant]
     Indication: HAEMORRHOIDS
     Route: 065
     Dates: start: 201608
  4. PREPARATION H NOS [Concomitant]
     Active Substance: COCOA BUTTER\PETROLATUM\PHENYLEPHRINE HYDROCHLORIDE\PHENYLEPHRINE HYDROCHLORIDE OR MINERAL OIL
     Indication: HAEMORRHOIDS
     Route: 065
     Dates: start: 201608
  5. OTEZLA [Suspect]
     Active Substance: APREMILAST
     Indication: PSORIATIC ARTHROPATHY
     Route: 048
     Dates: start: 20160803
  6. OTEZLA [Suspect]
     Active Substance: APREMILAST
     Indication: PSORIASIS
     Route: 048
     Dates: start: 2016
  7. BABY^S BUTT PASTE [Concomitant]
     Indication: HAEMORRHOIDS
     Route: 065
     Dates: start: 201608
  8. OTEZLA [Suspect]
     Active Substance: APREMILAST
     Route: 048
     Dates: start: 201609

REACTIONS (5)
  - Depression [Recovered/Resolved]
  - Diarrhoea [Unknown]
  - Weight decreased [Recovered/Resolved]
  - Pain [Recovered/Resolved]
  - Anal fissure [Unknown]

NARRATIVE: CASE EVENT DATE: 20160802
